FAERS Safety Report 25765930 (Version 1)
Quarter: 2025Q3

REPORT INFORMATION
  Report Type: Spontaneous
  Country: US (occurrence: US)
  Receive Date: 20250905
  Receipt Date: 20250905
  Transmission Date: 20251021
  Serious: No
  Sender: DOMPE FARMACEUTICI
  Company Number: US-FARMAPROD-202407-2651

PATIENT
  Sex: Female

DRUGS (19)
  1. OXERVATE [Suspect]
     Active Substance: CENEGERMIN-BKBJ
     Indication: Neurotrophic keratopathy
     Route: 047
     Dates: start: 20240624
  2. DOXYCYCLINE HYCLATE [Concomitant]
     Active Substance: DOXYCYCLINE HYCLATE
  3. CEFDINIR [Concomitant]
     Active Substance: CEFDINIR
  4. RIVASTIGMINE [Concomitant]
     Active Substance: RIVASTIGMINE
  5. ACETAMINOPHEN [Concomitant]
     Active Substance: ACETAMINOPHEN
  6. ONE-A-DAY WOMEN^S 50 PLUS [Concomitant]
  7. MELATONIN [Concomitant]
     Active Substance: MELATONIN
  8. VITAMIN B12 [Concomitant]
     Active Substance: CYANOCOBALAMIN
  9. VITAMIN D3 [Concomitant]
     Active Substance: CHOLECALCIFEROL
  10. IRON [Concomitant]
     Active Substance: IRON
  11. METHOTREXATE [Concomitant]
     Active Substance: METHOTREXATE
  12. HYDROXYCHLOROQUINE SULFATE [Concomitant]
     Active Substance: HYDROXYCHLOROQUINE SULFATE
  13. PROPRANOLOL HYDROCHLORIDE [Concomitant]
     Active Substance: PROPRANOLOL HYDROCHLORIDE
  14. MEMANTINE [Concomitant]
     Active Substance: MEMANTINE
  15. QUETIAPINE FUMARATE [Concomitant]
     Active Substance: QUETIAPINE FUMARATE
  16. NUPLAZID [Concomitant]
     Active Substance: PIMAVANSERIN TARTRATE
  17. REFRESH OPTIVE [Concomitant]
     Active Substance: CARBOXYMETHYLCELLULOSE SODIUM\GLYCERIN
  18. ERYTHROMYCIN [Concomitant]
     Active Substance: ERYTHROMYCIN
  19. MOXIFLOXACIN [Concomitant]
     Active Substance: MOXIFLOXACIN

REACTIONS (3)
  - Bronchitis [Unknown]
  - COVID-19 [Unknown]
  - Product dose omission issue [Unknown]
